FAERS Safety Report 9201544 (Version 1)
Quarter: 2013Q2

REPORT INFORMATION
  Report Type: Spontaneous
  Country: AR (occurrence: AR)
  Receive Date: 20130401
  Receipt Date: 20130401
  Transmission Date: 20140414
  Serious: Yes (Hospitalization, Other)
  Sender: FDA-Public Use
  Company Number: AR-AMGEN-ARGSP2013021857

PATIENT
  Age: 68 Year
  Sex: Female

DRUGS (1)
  1. ENBREL [Suspect]
     Indication: RHEUMATOID ARTHRITIS
     Dosage: 50 MG, WEEKLY
     Dates: start: 20120528

REACTIONS (4)
  - Liver disorder [Recovered/Resolved]
  - Limb injury [Not Recovered/Not Resolved]
  - Abasia [Not Recovered/Not Resolved]
  - Cartilage atrophy [Not Recovered/Not Resolved]
